FAERS Safety Report 8536630-5 (Version None)
Quarter: 2012Q3

REPORT INFORMATION
  Report Type: 
  Country: None (occurrence: None)
  Receive Date: 20120725
  Receipt Date: 20120724
  Transmission Date: 20120928
  Serious: Yes (Other)
  Sender: FDA-Public Use
  Company Number: AU-PFIZER INC-2012177734

PATIENT
  Sex: Male

DRUGS (5)
  1. ALLOPURINOL [Concomitant]
     Dosage: UNK
  2. NEXIUM [Concomitant]
     Dosage: UNK
  3. PRISTIQ [Suspect]
     Dosage: 100 MG, UNK
  4. PRISTIQ [Suspect]
     Dosage: 150 MG, UNK
  5. LIPIDIL [Concomitant]
     Dosage: UNK

REACTIONS (2)
  - JOINT INJURY [None]
  - GAMBLING [None]
